FAERS Safety Report 19150169 (Version 1)
Quarter: 2021Q2

REPORT INFORMATION
  Report Type: Spontaneous
  Country: FR (occurrence: FR)
  Receive Date: 20210417
  Receipt Date: 20210417
  Transmission Date: 20210717
  Serious: Yes (Life-Threatening, Other)
  Sender: FDA-Public Use
  Company Number: NVSC2021FR086232

PATIENT
  Age: 55 Year
  Sex: Male
  Weight: 80 kg

DRUGS (19)
  1. SANDOSTATINE [Suspect]
     Active Substance: OCTREOTIDE ACETATE
     Indication: DIARRHOEA
     Dosage: UNK
     Route: 065
     Dates: start: 20200721, end: 20200803
  2. CYCLOPHOSPHAMIDE. [Suspect]
     Active Substance: CYCLOPHOSPHAMIDE
     Dosage: 3900 MG, QD
     Route: 042
     Dates: start: 20200626
  3. FILGRASTIM [Concomitant]
     Active Substance: FILGRASTIM
     Indication: TOXICITY TO VARIOUS AGENTS
  4. CEFEPIME [Concomitant]
     Active Substance: CEFEPIME HYDROCHLORIDE
     Indication: APLASIA
     Dosage: UNK
     Route: 065
     Dates: start: 20200821
  5. SANDOSTATINE [Suspect]
     Active Substance: OCTREOTIDE ACETATE
  6. CYCLOPHOSPHAMIDE. [Suspect]
     Active Substance: CYCLOPHOSPHAMIDE
     Indication: SKIN GRAFT
     Dosage: 3900 MG, QD
     Route: 042
     Dates: start: 20200625
  7. CICLOSPORIN [Suspect]
     Active Substance: CYCLOSPORINE
     Indication: SKIN GRAFT
     Dosage: 200 MG, QD
     Route: 042
     Dates: start: 20200627, end: 20200827
  8. JAKAVI [Suspect]
     Active Substance: RUXOLITINIB
     Dosage: 2 DF, QD (15 MG)
     Route: 065
     Dates: start: 20200728
  9. CICLOSPORIN [Suspect]
     Active Substance: CYCLOSPORINE
     Dosage: 160 MG, QD
     Route: 048
     Dates: start: 20200818, end: 20210331
  10. CICLOSPORIN [Suspect]
     Active Substance: CYCLOSPORINE
     Dosage: 160 MG, QD
     Route: 048
     Dates: start: 20210331
  11. JAKAVI [Suspect]
     Active Substance: RUXOLITINIB
     Indication: GRAFT VERSUS HOST DISEASE
     Dosage: 2 DF, QD (5 MG)
     Route: 065
     Dates: start: 20200715
  12. JAKAVI [Suspect]
     Active Substance: RUXOLITINIB
     Dosage: 2 DF, QD (10 MG)
     Route: 065
     Dates: start: 20200718
  13. MYCOPHENOLATE MOFETIL. [Suspect]
     Active Substance: MYCOPHENOLATE MOFETIL
     Indication: SKIN GRAFT
     Dosage: 2000 MG, QD
     Route: 042
     Dates: start: 20200627, end: 20200806
  14. MYCOPHENOLATE MOFETIL. [Suspect]
     Active Substance: MYCOPHENOLATE MOFETIL
     Dosage: 2000 MG, QD
     Route: 042
     Dates: start: 20200806
  15. FILGRASTIM [Concomitant]
     Active Substance: FILGRASTIM
     Indication: NEUTROPENIA
     Dosage: UNK
     Route: 065
     Dates: start: 20200721
  16. FLUDARABINE [Concomitant]
     Active Substance: FLUDARABINE PHOSPHATE
     Indication: SKIN GRAFT
     Dosage: 56.7 MG, QD
     Route: 042
     Dates: start: 20200618
  17. FLUDARABINE [Concomitant]
     Active Substance: FLUDARABINE PHOSPHATE
     Dosage: 56.7 MG, QD
     Route: 042
     Dates: start: 20200620
  18. ZYVOXID [Concomitant]
     Active Substance: LINEZOLID
     Indication: APLASIA
     Dosage: UNK
     Route: 065
     Dates: start: 20200827
  19. SANDOSTATINE [Suspect]
     Active Substance: OCTREOTIDE ACETATE

REACTIONS (5)
  - Hypogammaglobulinaemia [Unknown]
  - Human herpesvirus 6 infection reactivation [Recovered/Resolved]
  - Product use in unapproved indication [Unknown]
  - Graft versus host disease [Unknown]
  - Pancytopenia [Unknown]

NARRATIVE: CASE EVENT DATE: 20200713
